FAERS Safety Report 8554896-2 (Version None)
Quarter: 2012Q3

REPORT INFORMATION
  Report Type: 
  Country: None (occurrence: None)
  Receive Date: 20120731
  Receipt Date: 20120727
  Transmission Date: 20120928
  Serious: Yes (Other)
  Sender: FDA-Public Use
  Company Number: DE-TEVA-351089USA

PATIENT
  Sex: Male

DRUGS (2)
  1. RITUXIMAB [Suspect]
  2. TREANDA [Suspect]
     Dosage: CYCLIC

REACTIONS (1)
  - POLYNEUROPATHY [None]
